FAERS Safety Report 16857588 (Version 2)
Quarter: 2019Q4

REPORT INFORMATION
  Report Type: Report from Study
  Country: None (occurrence: US)
  Receive Date: 20190926
  Receipt Date: 20191216
  Transmission Date: 20200122
  Serious: No
  Sender: FDA-Public Use
  Company Number: US-ABBVIE-19K-163-2934585-00

PATIENT
  Sex: Female

DRUGS (3)
  1. HUMIRA [Suspect]
     Active Substance: ADALIMUMAB
     Route: 058
     Dates: end: 201811
  2. HUMIRA [Suspect]
     Active Substance: ADALIMUMAB
     Indication: ANKYLOSING SPONDYLITIS
     Route: 058
     Dates: start: 201703
  3. HUMIRA [Suspect]
     Active Substance: ADALIMUMAB
     Route: 058
     Dates: start: 2019

REACTIONS (7)
  - Constipation [Unknown]
  - Gastrointestinal pain [Not Recovered/Not Resolved]
  - Uterine disorder [Recovered/Resolved]
  - Therapeutic response shortened [Unknown]
  - Pain [Recovering/Resolving]
  - Ankylosing spondylitis [Recovering/Resolving]
  - Abdominal discomfort [Not Recovered/Not Resolved]
